FAERS Safety Report 16386156 (Version 1)
Quarter: 2019Q2

REPORT INFORMATION
  Report Type: Spontaneous
  Country: US (occurrence: US)
  Receive Date: 20190603
  Receipt Date: 20190603
  Transmission Date: 20190711
  Serious: No
  Sender: FDA-Public Use
  Company Number: US-ARBOR PHARMACEUTICALS, LLC-US-2019ARB000581

PATIENT
  Sex: Female

DRUGS (2)
  1. HORIZANT [Suspect]
     Active Substance: GABAPENTIN ENACARBIL
     Indication: BURNING SENSATION
     Dosage: 600 MG, QD AROUND 5 PM AT MEAL TIME
     Route: 048
  2. HORIZANT [Suspect]
     Active Substance: GABAPENTIN ENACARBIL
     Dosage: 600 MG, QD AROUND 5 PM AT MEAL TIME
     Route: 048

REACTIONS (4)
  - Pain [Not Recovered/Not Resolved]
  - Swelling [Not Recovered/Not Resolved]
  - Musculoskeletal stiffness [Not Recovered/Not Resolved]
  - Product use in unapproved indication [Unknown]
